FAERS Safety Report 8846719 (Version 1)
Quarter: 2012Q4

REPORT INFORMATION
  Report Type: 
  Country: US (occurrence: US)
  Receive Date: 20121017
  Receipt Date: 20121017
  Transmission Date: 20130627
  Serious: No
  Sender: FDA-Public Use
  Company Number: US-ASTRAZENECA-2012SE78497

PATIENT
  Age: 79 Year
  Sex: Female

DRUGS (3)
  1. CRESTOR [Suspect]
     Route: 048
  2. TOPROL XL [Suspect]
     Route: 048
  3. LOSARTAN [Concomitant]

REACTIONS (2)
  - Influenza [Unknown]
  - Drug intolerance [Unknown]
